FAERS Safety Report 8861931 (Version 1)
Quarter: 2012Q4

REPORT INFORMATION
  Report Type: 
  Country: JP (occurrence: JP)
  Receive Date: 20121026
  Receipt Date: 20121026
  Transmission Date: 20130627
  Serious: Yes (Hospitalization)
  Sender: FDA-Public Use
  Company Number: JP-AMGEN-JPNSP2012067870

PATIENT
  Sex: Male

DRUGS (1)
  1. RANMARK [Suspect]
     Indication: PRODUCT USED FOR UNKNOWN INDICATION
     Dosage: 120 mg, UNK
     Route: 058

REACTIONS (2)
  - Hypocalcaemia [Recovered/Resolved]
  - Haemorrhage [Not Recovered/Not Resolved]
